FAERS Safety Report 4848711-8 (Version None)
Quarter: 2005Q4

REPORT INFORMATION
  Report Type: 
  Country: None (occurrence: None)
  Receive Date: 20051206
  Receipt Date: 20051121
  Transmission Date: 20060501
  Serious: Yes (Death)
  Sender: FDA-Public Use
  Company Number: JP_ 051007889

PATIENT
  Age: 17 Year
  Sex: Male

DRUGS (6)
  1. ZYPREXA [Suspect]
     Indication: SCHIZOPHRENIA
     Dosage: 5 MG, DAILYU (1/D), ORAL
     Route: 048
     Dates: start: 20050809
  2. SEPAZON (CLOXAZOLAM) [Concomitant]
  3. ROHYPNOL              /NET/     (FLUNITRAZEPAM) [Concomitant]
  4. DEPAS (ETIZOLAM) [Concomitant]
  5. HALCION     /NET/ (TRIAZOLAM) [Concomitant]
  6. ALOSENN (ACHILLEA, RUBIA ROOT TINCTURE, SENNA FRUIT, SENNA LEAF, TARAX [Concomitant]

REACTIONS (4)
  - ANXIETY [None]
  - APATHY [None]
  - COMPLETED SUICIDE [None]
  - DEPRESSIVE SYMPTOM [None]
